FAERS Safety Report 8842544 (Version 2)
Quarter: 2015Q2

REPORT INFORMATION
  Report Type: Report from Study
  Country: US (occurrence: US)
  Receive Date: 20121016
  Receipt Date: 20150612
  Transmission Date: 20150821
  Serious: Yes (Death)
  Sender: FDA-Public Use
  Company Number: US-ROCHE-1131943

PATIENT
  Sex: Female

DRUGS (2)
  1. XELODA [Suspect]
     Active Substance: CAPECITABINE
     Indication: COLON CANCER
  2. XELODA [Suspect]
     Active Substance: CAPECITABINE
     Indication: PANCREATIC CARCINOMA
     Dosage: 500MG 2 TAB 2 TIMES A DAY FOR 14 DAYS AND THEN OFF FOR 7 DAYS
     Route: 048
     Dates: start: 201002

REACTIONS (2)
  - Death [Fatal]
  - Off label use [Unknown]
